FAERS Safety Report 9844519 (Version 3)
Quarter: 2014Q1

REPORT INFORMATION
  Report Type: Spontaneous
  Country: US (occurrence: US)
  Receive Date: 20140127
  Receipt Date: 20140320
  Transmission Date: 20141002
  Serious: Yes (Life-Threatening, Hospitalization, Disabling, Other)
  Sender: FDA-Public Use
  Company Number: US-009507513-1401USA008769

PATIENT
  Sex: Female
  Weight: 64.4 kg

DRUGS (1)
  1. NEXPLANON [Suspect]
     Indication: CONTRACEPTION
     Dosage: 1 DF,1 ROD
     Route: 059
     Dates: start: 20130222, end: 20131116

REACTIONS (12)
  - Anaemia [Recovered/Resolved]
  - Menorrhagia [Recovered/Resolved]
  - Transfusion [Unknown]
  - Chlamydial infection [Unknown]
  - Uterine polyp [Unknown]
  - Uterine leiomyoma [Unknown]
  - Pelvic inflammatory disease [Unknown]
  - Ovarian cyst [Unknown]
  - Weight decreased [Unknown]
  - Anxiety [Unknown]
  - Depression [Unknown]
  - Chest pain [Unknown]
